FAERS Safety Report 9544074 (Version 6)
Quarter: 2014Q1

REPORT INFORMATION
  Report Type: Spontaneous
  Country: US (occurrence: US)
  Receive Date: 20130923
  Receipt Date: 20140324
  Transmission Date: 20141002
  Serious: Yes (Hospitalization, Disabling, Other)
  Sender: FDA-Public Use
  Company Number: US-009507513-1202USA00857

PATIENT
  Sex: Female
  Weight: 74.38 kg

DRUGS (5)
  1. FOSAMAX [Suspect]
     Indication: OSTEOPENIA
     Dosage: 10 MG, QD
     Route: 048
     Dates: start: 1996, end: 200110
  2. FOSAMAX [Suspect]
     Dosage: 70 MG, QW
     Route: 048
     Dates: start: 200110, end: 200504
  3. FOSAMAX PLUS D [Suspect]
     Indication: OSTEOPENIA
     Dosage: 70 MG, QW
     Route: 048
     Dates: start: 200509, end: 200710
  4. CALCIUM (UNSPECIFIED) (+) VITAMIN D (UNSPECIFIED) [Concomitant]
     Dosage: 600 MG, UNK
  5. MOBIC [Concomitant]
     Indication: OSTEOARTHRITIS

REACTIONS (50)
  - Wrist fracture [Recovered/Resolved]
  - Arthritis [Not Recovered/Not Resolved]
  - Cardiac disorder [Unknown]
  - Sleep disorder therapy [Unknown]
  - Dyslipidaemia [Unknown]
  - Scoliosis [Unknown]
  - Oestrogen deficiency [Unknown]
  - Radius fracture [Unknown]
  - Osteoarthritis [Unknown]
  - Osteoarthritis [Unknown]
  - Infection [Unknown]
  - Myocardial ischaemia [Not Recovered/Not Resolved]
  - Arteriospasm coronary [Unknown]
  - Cardiac murmur [Unknown]
  - Uterine dilation and curettage [Unknown]
  - Tonsillectomy [Unknown]
  - Palpitations [Unknown]
  - Snoring [Unknown]
  - Joint injury [Unknown]
  - Limb injury [Unknown]
  - Device dislocation [Unknown]
  - Knee deformity [Unknown]
  - Ligament laxity [Unknown]
  - Musculoskeletal discomfort [Unknown]
  - Back pain [Not Recovered/Not Resolved]
  - Gastrooesophageal reflux disease [Unknown]
  - Constipation [Recovered/Resolved]
  - Nausea [Unknown]
  - Vomiting [Unknown]
  - Arthralgia [Unknown]
  - Joint swelling [Unknown]
  - Femur fracture [Recovered/Resolved]
  - Open reduction of fracture [Not Recovered/Not Resolved]
  - Internal fixation of fracture [Unknown]
  - Medical device removal [Unknown]
  - Bone graft [Unknown]
  - Internal fixation of fracture [Unknown]
  - Spinal compression fracture [Not Recovered/Not Resolved]
  - Knee arthroplasty [Unknown]
  - Hip arthroplasty [Unknown]
  - Hip arthroplasty [Recovered/Resolved]
  - Hip arthroplasty [Unknown]
  - Fracture nonunion [Unknown]
  - Bone graft [Unknown]
  - Medical device removal [Unknown]
  - Fracture nonunion [Unknown]
  - Hand fracture [Unknown]
  - Osteoporosis [Unknown]
  - Fall [Unknown]
  - Hypertension [Unknown]
